FAERS Safety Report 20098408 (Version 1)
Quarter: 2021Q4

REPORT INFORMATION
  Report Type: Spontaneous
  Country: SK (occurrence: SK)
  Receive Date: 20211122
  Receipt Date: 20211122
  Transmission Date: 20220303
  Serious: Yes (Other)
  Sender: FDA-Public Use
  Company Number: SK-002147023-NVSC2021SK183319

PATIENT
  Sex: Female

DRUGS (2)
  1. LETROZOLE [Suspect]
     Active Substance: LETROZOLE
     Indication: Breast cancer
     Dosage: UNK
     Route: 065
     Dates: start: 20210212
  2. KISQALI [Suspect]
     Active Substance: RIBOCICLIB
     Indication: Breast cancer
     Dosage: 400 MG
     Route: 065
     Dates: start: 20210212, end: 20210628

REACTIONS (2)
  - Neutropenia [Unknown]
  - Liver disorder [Unknown]

NARRATIVE: CASE EVENT DATE: 20210101
